FAERS Safety Report 7731733-7 (Version None)
Quarter: 2011Q3

REPORT INFORMATION
  Report Type: 
  Country: None (occurrence: None)
  Receive Date: 20110906
  Receipt Date: 20110628
  Transmission Date: 20111222
  Serious: No
  Sender: FDA-Public Use
  Company Number: US-AMGEN-USASP2011032869

PATIENT
  Age: 65 Year
  Sex: Female

DRUGS (3)
  1. PROLIA [Suspect]
     Indication: PRODUCT USED FOR UNKNOWN INDICATION
     Dosage: UNK
     Dates: start: 20110109
  2. SYNTHROID [Concomitant]
  3. CALTRATE WITH VITAMIN D [Concomitant]

REACTIONS (2)
  - PAIN IN EXTREMITY [None]
  - VOMITING [None]
